FAERS Safety Report 9928569 (Version 2)
Quarter: 2014Q1

REPORT INFORMATION
  Report Type: Report from Study
  Country: US (occurrence: US)
  Receive Date: 20140227
  Receipt Date: 20140228
  Transmission Date: 20141002
  Serious: No
  Sender: FDA-Public Use
  Company Number: US-PURDUE-USA-2014-0111536

PATIENT
  Sex: Female

DRUGS (1)
  1. OXY CR TAB [Suspect]
     Indication: HEADACHE
     Dosage: 80 MG, BID
     Route: 048
     Dates: start: 20130304

REACTIONS (2)
  - Breakthrough pain [Unknown]
  - Drug effect incomplete [Unknown]
